FAERS Safety Report 6532299-X (Version None)
Quarter: 2010Q1

REPORT INFORMATION
  Report Type: 
  Country: None (occurrence: None)
  Receive Date: 20100108
  Receipt Date: 20091231
  Transmission Date: 20100710
  Serious: Yes (Other)
  Sender: FDA-Public Use
  Company Number: US-ABBOTT-09P-163-0570446-00

PATIENT
  Sex: Female

DRUGS (4)
  1. DEPAKOTE [Suspect]
     Indication: BIPOLAR DISORDER
     Dosage: NON-COMPLIANT, 3 PER WEEK
     Route: 048
     Dates: start: 20090101, end: 20090407
  2. SEROQUEL [Concomitant]
     Indication: BIPOLAR DISORDER
     Route: 048
  3. PROMETRIUM [Concomitant]
     Indication: PREGNANCY
     Route: 067
     Dates: start: 20090422
  4. VITAMIN B/FOLIC ACID [Concomitant]
     Indication: DRUG USE FOR UNKNOWN INDICATION

REACTIONS (6)
  - ANXIETY [None]
  - ARRESTED LABOUR [None]
  - DYSPEPSIA [None]
  - UTERINE HAEMATOMA [None]
  - VAGINAL HAEMORRHAGE [None]
  - VOMITING [None]
